FAERS Safety Report 6796135-9 (Version None)
Quarter: 2010Q2

REPORT INFORMATION
  Report Type: 
  Country: None (occurrence: None)
  Receive Date: 20100625
  Receipt Date: 20100609
  Transmission Date: 20101027
  Serious: Yes (Other)
  Sender: FDA-Public Use
  Company Number: ES-B.I. PHARMACEUTICALS,INC./RIDGEFIELD-2010-BP-07154YA

PATIENT
  Sex: Female

DRUGS (1)
  1. OMNIC OCAS ORODISPERSABLE [Suspect]
     Indication: URINARY TRACT DISORDER
     Route: 048

REACTIONS (3)
  - GLOSSITIS [None]
  - OFF LABEL USE [None]
  - SIALOADENITIS [None]
